FAERS Safety Report 10479861 (Version 1)
Quarter: 2014Q3

REPORT INFORMATION
  Report Type: Spontaneous
  Country: US (occurrence: None)
  Receive Date: 20140926
  Receipt Date: 20140926
  Transmission Date: 20150326
  Serious: Yes (Hospitalization)
  Sender: FDA-Public Use
  Company Number: None

PATIENT
  Age: 41 Year
  Sex: Female
  Weight: 84.37 kg

DRUGS (1)
  1. PRAZOSIN [Suspect]
     Active Substance: PRAZOSIN
     Indication: POST-TRAUMATIC STRESS DISORDER
     Dosage: 1 MG X1 WEEK THEN 2 MG, ONCE DAILY, TAKEN BY MOUTH
     Route: 048
     Dates: start: 20140819, end: 20140829

REACTIONS (7)
  - Faecal incontinence [None]
  - Vomiting [None]
  - Diarrhoea [None]
  - Dizziness [None]
  - Nausea [None]
  - Dehydration [None]
  - Off label use [None]

NARRATIVE: CASE EVENT DATE: 20140819
